FAERS Safety Report 15718854 (Version 1)
Quarter: 2018Q4

REPORT INFORMATION
  Report Type: Spontaneous
  Country: US (occurrence: US)
  Receive Date: 20181213
  Receipt Date: 20181213
  Transmission Date: 20190205
  Serious: No
  Sender: FDA-Public Use
  Company Number: US-CELGENEUS-USA-20181201521

PATIENT
  Age: 55 Year
  Sex: Female

DRUGS (2)
  1. OTEZLA [Suspect]
     Active Substance: APREMILAST
     Indication: PSORIASIS
     Route: 048
     Dates: start: 201701, end: 2018
  2. OTEZLA [Suspect]
     Active Substance: APREMILAST
     Dosage: STARTER PACK
     Route: 048
     Dates: start: 2018

REACTIONS (2)
  - Unevaluable event [Unknown]
  - Insurance issue [Unknown]

NARRATIVE: CASE EVENT DATE: 2018
